FAERS Safety Report 7700799-2 (Version None)
Quarter: 2011Q3

REPORT INFORMATION
  Report Type: 
  Country: None (occurrence: None)
  Receive Date: 20110822
  Receipt Date: 20110811
  Transmission Date: 20111222
  Serious: Yes (Death, Hospitalization, Other)
  Sender: FDA-Public Use
  Company Number: US-CELGENEUS-163-21880-11042581

PATIENT
  Sex: Male
  Weight: 70 kg

DRUGS (4)
  1. REVLIMID [Suspect]
     Dosage: 25 MILLIGRAM
     Route: 048
     Dates: start: 20100119, end: 20110501
  2. VELCADE [Concomitant]
     Indication: MULTIPLE MYELOMA
     Dosage: 2.3 MILLIGRAM
     Route: 041
     Dates: start: 20100323, end: 20110526
  3. SOLU-MEDROL [Concomitant]
     Indication: MULTIPLE MYELOMA
     Dosage: 2 MILLIGRAM
     Route: 065
     Dates: start: 20110606, end: 20110606
  4. ZOMETA [Concomitant]
     Dosage: 4 MILLIGRAM
     Route: 041
     Dates: start: 20100122, end: 20110224

REACTIONS (3)
  - OSTEONECROSIS OF JAW [None]
  - MULTIPLE MYELOMA [None]
  - ANAEMIA [None]
